FAERS Safety Report 10798385 (Version 1)
Quarter: 2015Q1

REPORT INFORMATION
  Report Type: Spontaneous
  Country: US (occurrence: US)
  Receive Date: 20150216
  Receipt Date: 20150216
  Transmission Date: 20150721
  Serious: Yes (Other)
  Sender: FDA-Public Use
  Company Number: US-BAYER-2015-017777

PATIENT
  Age: 67 Year
  Sex: Female

DRUGS (1)
  1. CIPRO [Suspect]
     Active Substance: CIPROFLOXACIN HYDROCHLORIDE
     Dosage: UNK

REACTIONS (6)
  - Blindness [None]
  - Diabetic neuropathy [None]
  - Drug hypersensitivity [None]
  - Intervertebral disc protrusion [None]
  - Intervertebral disc degeneration [None]
  - Microangiopathy [None]
